FAERS Safety Report 25864817 (Version 1)
Quarter: 2025Q3

REPORT INFORMATION
  Report Type: Spontaneous
  Country: US (occurrence: None)
  Receive Date: 20250929
  Receipt Date: 20250929
  Transmission Date: 20251020
  Serious: Yes (Hospitalization)
  Sender: FDA-CTU
  Company Number: None

PATIENT
  Sex: Female

DRUGS (2)
  1. FORTEO [Suspect]
     Active Substance: TERIPARATIDE
     Indication: Senile osteoporosis
     Dosage: FREQUENCY : DAILY;?
     Route: 058
     Dates: start: 20241203
  2. FORTEO [Suspect]
     Active Substance: TERIPARATIDE
     Indication: Osteoporotic fracture

REACTIONS (6)
  - Electrocardiogram abnormal [None]
  - Transient ischaemic attack [None]
  - Disease complication [None]
  - Blood pressure abnormal [None]
  - Blood sodium abnormal [None]
  - Blood potassium abnormal [None]
